FAERS Safety Report 23336326 (Version 1)
Quarter: 2023Q4

REPORT INFORMATION
  Report Type: Report from Study
  Country: US (occurrence: US)
  Receive Date: 20231225
  Receipt Date: 20231225
  Transmission Date: 20240110
  Serious: Yes (Other)
  Sender: FDA-Public Use
  Company Number: US-ABBVIE-5553412

PATIENT
  Sex: Male

DRUGS (1)
  1. SKYRIZI [Suspect]
     Active Substance: RISANKIZUMAB-RZAA
     Indication: Crohn^s disease
     Route: 058
     Dates: start: 20231001

REACTIONS (8)
  - Ostomy bag placement [Unknown]
  - Erythema [Unknown]
  - Tenderness [Unknown]
  - Loss of personal independence in daily activities [Unknown]
  - Crohn^s disease [Not Recovered/Not Resolved]
  - Skin mass [Unknown]
  - Swelling [Unknown]
  - Contusion [Unknown]

NARRATIVE: CASE EVENT DATE: 20230101
